FAERS Safety Report 4622212-4 (Version None)
Quarter: 2005Q1

REPORT INFORMATION
  Report Type: 
  Country: None (occurrence: None)
  Receive Date: 20050322
  Receipt Date: 20050322
  Transmission Date: 20050727
  Serious: No
  Sender: FDA-Public Use
  Company Number: None

PATIENT
  Sex: Male
  Weight: 88.4 kg

DRUGS (2)
  1. CAPECITABINE [Suspect]
     Dosage: 825MG/M2 ORALLY DAILY DURING RT.
     Route: 048
     Dates: start: 20050103
  2. OXALIPLATIN [Suspect]
     Dosage: 60MG/M 2 DAYS 1, 8, 15, 22, 29

REACTIONS (4)
  - ERYTHEMA [None]
  - OEDEMA PERIPHERAL [None]
  - PAIN IN EXTREMITY [None]
  - SKIN WARM [None]
